FAERS Safety Report 7756487-X (Version None)
Quarter: 2011Q3

REPORT INFORMATION
  Report Type: 
  Country: None (occurrence: None)
  Receive Date: 20110916
  Receipt Date: 20110912
  Transmission Date: 20111222
  Serious: Yes (Other)
  Sender: FDA-Public Use
  Company Number: US-SANOFI-AVENTIS-2011SA059441

PATIENT
  Sex: Male

DRUGS (3)
  1. MULTAQ [Suspect]
     Route: 065
  2. MULTAQ [Suspect]
     Route: 065
  3. MULTAQ [Suspect]
     Indication: ATRIAL FIBRILLATION
     Dosage: ONE TABLET
     Route: 065

REACTIONS (3)
  - UNDERDOSE [None]
  - ATRIAL FIBRILLATION [None]
  - FATIGUE [None]
